FAERS Safety Report 24378212 (Version 1)
Quarter: 2024Q3

REPORT INFORMATION
  Report Type: Spontaneous
  Country: DK (occurrence: DK)
  Receive Date: 20240930
  Receipt Date: 20240930
  Transmission Date: 20241016
  Serious: Yes (Hospitalization)
  Sender: FRESENIUS KABI
  Company Number: DK-FreseniusKabi-FK202414172

PATIENT
  Age: 59 Year
  Sex: Male

DRUGS (8)
  1. CARBOPLATIN [Suspect]
     Active Substance: CARBOPLATIN
     Indication: Product used for unknown indication
     Dosage: 1ST DRUG REGIMEN WAS ON 16/SEP?FORM OF ADMINISTRATION-CONCENTRATE FOR INFUSION
     Dates: start: 20240916
  2. CARBOPLATIN [Suspect]
     Active Substance: CARBOPLATIN
     Dosage: 1ST DRUG REGIMEN WAS ON 16/SEP?FORM OF ADMINISTRATION-CONCENTRATE FOR INFUSION
     Dates: start: 20240916
  3. ETOPOSIDE [Concomitant]
     Active Substance: ETOPOSIDE
     Indication: Product used for unknown indication
  4. Akynzeo capsules [Concomitant]
     Indication: Product used for unknown indication
  5. SOLU-MEDROL [Concomitant]
     Active Substance: METHYLPREDNISOLONE SODIUM SUCCINATE
     Indication: Product used for unknown indication
  6. PREDNISOLONE [Concomitant]
     Active Substance: PREDNISOLONE
     Indication: Product used for unknown indication
  7. METOCLOPRAMIDE [Concomitant]
     Active Substance: METOCLOPRAMIDE
     Indication: Product used for unknown indication
  8. Glucose 50 mg/ml solution for infusion 500 ml Fresenius Kabi infusion [Concomitant]
     Indication: Vehicle solution use
     Dosage: FOA-SOLUTION FOR INFUSION

REACTIONS (2)
  - Dyspnoea [Recovered/Resolved]
  - Swollen tongue [Recovered/Resolved]

NARRATIVE: CASE EVENT DATE: 20240918
